FAERS Safety Report 19400178 (Version 3)
Quarter: 2021Q3

REPORT INFORMATION
  Report Type: Spontaneous
  Country: JP (occurrence: JP)
  Receive Date: 20210610
  Receipt Date: 20210708
  Transmission Date: 20211014
  Serious: Yes (Other)
  Sender: FDA-Public Use
  Company Number: JP-PFIZER INC-2021648835

PATIENT
  Age: 81 Year
  Sex: Female

DRUGS (7)
  1. BUFFERIN [ACETYLSALICYLIC ACID] [Concomitant]
     Dosage: UNK UNK, UNKNOWN FREQ.
     Route: 048
  2. CELECOX [Suspect]
     Active Substance: CELECOXIB
     Dosage: 100 MG, 1X/DAY
     Route: 048
     Dates: start: 201606
  3. RABEPRAZOLE [Concomitant]
     Active Substance: RABEPRAZOLE
     Dosage: 10, UNKNOWN FREQ.
     Route: 048
  4. ETIZOLAM [Concomitant]
     Active Substance: ETIZOLAM
     Dosage: 0.25, UNKNOWN FREQ
     Route: 048
  5. MIYA?BM [Concomitant]
     Active Substance: CLOSTRIDIUM BUTYRICUM SPORES STRAIN M-55
     Dosage: UNK UNK, UNKNOWN FREQ.
     Route: 048
  6. BISONO [Concomitant]
     Active Substance: BISOPROLOL
     Dosage: 4, UNKNOWN FREQ.
     Route: 061
  7. HOKUNALIN [TULOBUTEROL] [Concomitant]
     Active Substance: TULOBUTEROL
     Dosage: 2, UNKNOWN FREQ.(TAPE (INCLUDING POULTICE))
     Route: 061

REACTIONS (1)
  - Pemphigoid [Recovering/Resolving]

NARRATIVE: CASE EVENT DATE: 20210518
